FAERS Safety Report 8123259-6 (Version None)
Quarter: 2012Q1

REPORT INFORMATION
  Report Type: 
  Country: None (occurrence: None)
  Receive Date: 20120208
  Receipt Date: 20120207
  Transmission Date: 20120608
  Serious: Yes (Disabling)
  Sender: FDA-Public Use
  Company Number: US-TEVA-2010005834

PATIENT
  Sex: Male
  Weight: 111.23 kg

DRUGS (2)
  1. NUVIGIL [Suspect]
     Indication: NARCOLEPSY
     Route: 048
     Dates: start: 20101101
  2. NUVIGIL [Suspect]
     Indication: SLEEP APNOEA SYNDROME

REACTIONS (3)
  - DRUG EFFECT DECREASED [None]
  - MUSCLE TIGHTNESS [None]
  - HEADACHE [None]
